FAERS Safety Report 9808053 (Version 7)
Quarter: 2016Q3

REPORT INFORMATION
  Report Type: Spontaneous
  Country: US (occurrence: US)
  Receive Date: 20140110
  Receipt Date: 20160705
  Transmission Date: 20161109
  Serious: Yes (Hospitalization, Other)
  Sender: FDA-Public Use
  Company Number: US-GLAXOSMITHKLINE-A1055905A

PATIENT
  Age: 52 Year
  Sex: Female

DRUGS (5)
  1. FLOLAN [Suspect]
     Active Substance: EPOPROSTENOL SODIUM
     Indication: PULMONARY HYPERTENSION
     Dosage: 22 NG/KG/MIN, CONTINUOUS
  2. REVATIO [Concomitant]
     Active Substance: SILDENAFIL CITRATE
  3. ADCIRCA [Concomitant]
     Active Substance: TADALAFIL
  4. FLOLAN [Suspect]
     Active Substance: EPOPROSTENOL SODIUM
     Indication: COR PULMONALE CHRONIC
     Dosage: DOSE: 22 NG/KG/MINCONCENTRATION: 30,000 NG/MLPUMP RATE: 84 ML/DAYVIAL STRENGTH: 1.5 MG
     Route: 042
     Dates: start: 20070906
  5. AMLODIPINE [Concomitant]
     Active Substance: AMLODIPINE BESYLATE

REACTIONS (16)
  - Central venous catheterisation [Unknown]
  - Pain in jaw [Unknown]
  - Hospitalisation [Unknown]
  - Flushing [Unknown]
  - Infusion site infection [Recovering/Resolving]
  - Dyspnoea [Unknown]
  - Vein disorder [Unknown]
  - Cough [Unknown]
  - Septic embolus [Recovering/Resolving]
  - Device issue [Unknown]
  - Musculoskeletal pain [Unknown]
  - Nausea [Unknown]
  - Device related infection [Unknown]
  - Catheter removal [Recovering/Resolving]
  - Device dislocation [Unknown]
  - Pain in extremity [Unknown]

NARRATIVE: CASE EVENT DATE: 20140124
